FAERS Safety Report 4510291-4 (Version None)
Quarter: 2004Q4

REPORT INFORMATION
  Report Type: 
  Country: None (occurrence: None)
  Receive Date: 20041124
  Receipt Date: 20041020
  Transmission Date: 20050328
  Serious: Yes (Hospitalization)
  Sender: FDA-Public Use
  Company Number: US-MERCK-0410USA03181

PATIENT
  Age: 53 Year
  Sex: Female
  Weight: 78 kg

DRUGS (5)
  1. VIOXX [Suspect]
     Route: 048
     Dates: start: 20040101
  2. NORVASC [Concomitant]
     Route: 065
  3. ZOLOFT [Concomitant]
     Route: 065
  4. LISINOPRIL [Concomitant]
     Route: 065
  5. CRESTOR [Concomitant]
     Route: 065

REACTIONS (6)
  - CARDIAC DISORDER [None]
  - CHEST PAIN [None]
  - RASH [None]
  - SKIN BLEEDING [None]
  - SWELLING [None]
  - URTICARIA [None]
